FAERS Safety Report 13083891 (Version 3)
Quarter: 2020Q4

REPORT INFORMATION
  Report Type: Spontaneous
  Country: FR (occurrence: FR)
  Receive Date: 20170104
  Receipt Date: 20201005
  Transmission Date: 20210113
  Serious: Yes (Other)
  Sender: FDA-Public Use
  Company Number: FR-AUROBINDO-AUR-APL-2016-15873

PATIENT
  Age: 32 Year
  Sex: Female

DRUGS (4)
  1. CLARITHROMYCIN. [Suspect]
     Active Substance: CLARITHROMYCIN
     Indication: DYSPNOEA
  2. CLARITHROMYCIN. [Suspect]
     Active Substance: CLARITHROMYCIN
     Indication: RESPIRATORY SYMPTOM
     Dosage: 500 MILLIGRAM, TWO TIMES A DAY
     Route: 065
  3. CLARITHROMYCIN. [Suspect]
     Active Substance: CLARITHROMYCIN
     Indication: PNEUMONIA
  4. CLARITHROMYCIN. [Suspect]
     Active Substance: CLARITHROMYCIN
     Indication: COUGH

REACTIONS (11)
  - Hyperthermia [Recovered/Resolved]
  - Rash erythematous [Recovered/Resolved]
  - Arthralgia [Recovered/Resolved]
  - Serum sickness-like reaction [Recovered/Resolved]
  - Ocular hyperaemia [Recovered/Resolved]
  - Urticaria [Recovered/Resolved]
  - Visual acuity reduced [Recovered/Resolved]
  - Arthritis [Recovered/Resolved]
  - Rash macular [Recovered/Resolved]
  - Iridocyclitis [Recovered/Resolved]
  - Skin mass [Recovered/Resolved]
